FAERS Safety Report 5848004-6 (Version None)
Quarter: 2008Q3

REPORT INFORMATION
  Report Type: 
  Country: None (occurrence: None)
  Receive Date: 20080818
  Receipt Date: 20080806
  Transmission Date: 20090109
  Serious: Yes (Hospitalization)
  Sender: FDA-Public Use
  Company Number: GB-AMGEN-UK299877

PATIENT

DRUGS (5)
  1. NEULASTA [Suspect]
     Indication: CHEMOTHERAPY
  2. RITUXIMAB [Concomitant]
  3. DEXAMETHASONE TAB [Concomitant]
  4. CYTARABINE [Concomitant]
  5. CISPLATIN [Concomitant]

REACTIONS (1)
  - NEUTROPENIC SEPSIS [None]
